FAERS Safety Report 23563594 (Version 2)
Quarter: 2024Q1

REPORT INFORMATION
  Report Type: Spontaneous
  Country: US (occurrence: US)
  Receive Date: 20240226
  Receipt Date: 20240311
  Transmission Date: 20240409
  Serious: Yes (Other)
  Sender: FDA-Public Use
  Company Number: US-TRAVERE-2024TVT00158

PATIENT
  Sex: Male
  Weight: 106.59 kg

DRUGS (19)
  1. FILSPARI [Suspect]
     Active Substance: SPARSENTAN
     Indication: IgA nephropathy
     Route: 048
     Dates: start: 202310
  2. KERENDIA [Concomitant]
     Active Substance: FINERENONE
  3. MOUNJARO [Concomitant]
     Active Substance: TIRZEPATIDE
  4. SODIUM BICARBONATE [Concomitant]
     Active Substance: SODIUM BICARBONATE
  5. NIFEDIPINE [Concomitant]
     Active Substance: NIFEDIPINE
  6. IRON [Concomitant]
     Active Substance: IRON
  7. FARXIGA [Concomitant]
     Active Substance: DAPAGLIFLOZIN PROPANEDIOL
  8. CHLORTHALIDONE [Concomitant]
     Active Substance: CHLORTHALIDONE
  9. DILTIAZEM [Concomitant]
     Active Substance: DILTIAZEM
  10. GLIPIZIDE ER [Concomitant]
     Active Substance: GLIPIZIDE
  11. FAMOTIDINE [Concomitant]
     Active Substance: FAMOTIDINE
  12. OZEMPIC [Concomitant]
     Active Substance: SEMAGLUTIDE
  13. VITAMINS [Concomitant]
     Active Substance: VITAMINS
  14. TRESIBA [Concomitant]
     Active Substance: INSULIN DEGLUDEC
  15. TARPEYO [Concomitant]
     Active Substance: BUDESONIDE
  16. ALLOPURINOL [Concomitant]
     Active Substance: ALLOPURINOL
  17. VITAMIN D3 [Concomitant]
     Active Substance: CHOLECALCIFEROL
  18. LOKELMA [Concomitant]
     Active Substance: SODIUM ZIRCONIUM CYCLOSILICATE
  19. CARDIZEM [Concomitant]
     Active Substance: DILTIAZEM HYDROCHLORIDE

REACTIONS (1)
  - Hyperkalaemia [Recovering/Resolving]
